FAERS Safety Report 5375865-X (Version None)
Quarter: 2007Q3

REPORT INFORMATION
  Report Type: 
  Country: None (occurrence: None)
  Receive Date: 20070702
  Receipt Date: 20070623
  Transmission Date: 20080115
  Serious: Yes (Hospitalization)
  Sender: FDA-Public Use
  Company Number: PHBS2006JP19855

PATIENT
  Age: 53 Year
  Sex: Male

DRUGS (3)
  1. DIOVAN [Suspect]
     Indication: HYPERTENSION
     Dosage: 80 MG/DAY
     Route: 048
     Dates: start: 20061121, end: 20061218
  2. ACTOS [Suspect]
     Indication: DIABETES MELLITUS
     Dosage: 15 MG/DAY
     Route: 048
     Dates: start: 20061124, end: 20061214
  3. EUGLUCON [Suspect]
     Indication: DIABETES MELLITUS
     Dosage: 2.5 MG/DAY
     Route: 048
     Dates: start: 20061109, end: 20061201

REACTIONS (1)
  - HYPOGLYCAEMIA [None]
